FAERS Safety Report 6630156-1 (Version None)
Quarter: 2010Q1

REPORT INFORMATION
  Report Type: 
  Country: None (occurrence: None)
  Receive Date: 20100311
  Receipt Date: 20100111
  Transmission Date: 20100710
  Serious: Yes (Hospitalization)
  Sender: FDA-Public Use
  Company Number: GB-TEVA-226666ISR

PATIENT
  Sex: Male

DRUGS (14)
  1. PREDNISOLONE [Suspect]
     Indication: PROSTATE CANCER
     Route: 048
     Dates: start: 20090409
  2. ABIRATERONE ACETATE OR PLACEBO [Suspect]
     Route: 048
     Dates: start: 20090409
  3. PANADEINE CO [Concomitant]
     Indication: CANCER PAIN
     Route: 048
     Dates: start: 20090620
  4. ARTHROTEC [Concomitant]
     Indication: CANCER PAIN
     Dates: start: 20090423, end: 20090618
  5. BACLOFEN [Concomitant]
     Indication: MYALGIA
     Route: 048
     Dates: start: 20090610, end: 20090614
  6. BACLOFEN [Concomitant]
     Indication: MUSCLE SPASMS
  7. TRAMADOL HCL [Concomitant]
     Indication: MYALGIA
     Route: 048
     Dates: start: 20090605, end: 20090619
  8. TRAMADOL HCL [Concomitant]
     Indication: MUSCLE SPASMS
  9. MACROGOL [Concomitant]
     Indication: CONSTIPATION PROPHYLAXIS
     Route: 048
     Dates: start: 20090618
  10. METOCLOPRAMIDE [Concomitant]
     Indication: NAUSEA
     Route: 048
     Dates: start: 20090620
  11. PARACETAMOL [Concomitant]
     Indication: PAIN IN EXTREMITY
     Route: 048
     Dates: start: 20090620
  12. IBUPROFEN [Concomitant]
     Indication: CANCER PAIN
     Route: 048
     Dates: start: 20090620
  13. BACLOFEN [Concomitant]
     Route: 048
     Dates: start: 20090615, end: 20090620
  14. BACLOFEN [Concomitant]

REACTIONS (1)
  - MUSCULOSKELETAL PAIN [None]
